FAERS Safety Report 19523828 (Version 7)
Quarter: 2022Q1

REPORT INFORMATION
  Report Type: Report from Study
  Country: US (occurrence: US)
  Receive Date: 20210712
  Receipt Date: 20220301
  Transmission Date: 20220424
  Serious: No
  Sender: FDA-Public Use
  Company Number: NVSC2021US148077

PATIENT
  Sex: Female

DRUGS (2)
  1. ENTRESTO [Suspect]
     Active Substance: SACUBITRIL\VALSARTAN
     Indication: Product used for unknown indication
     Dosage: 1 DF, BID(49/51 MG)
     Route: 048
     Dates: start: 202106
  2. ENTRESTO [Suspect]
     Active Substance: SACUBITRIL\VALSARTAN
     Dosage: UNK
     Route: 048

REACTIONS (13)
  - Swelling [Recovering/Resolving]
  - Productive cough [Recovering/Resolving]
  - Food craving [Unknown]
  - Dyspepsia [Unknown]
  - Paraesthesia [Not Recovered/Not Resolved]
  - Blood glucose decreased [Recovering/Resolving]
  - Memory impairment [Not Recovered/Not Resolved]
  - Fatigue [Unknown]
  - Hypoaesthesia [Not Recovered/Not Resolved]
  - Product dose omission issue [Unknown]
  - Weight increased [Unknown]
  - Eye discharge [Recovering/Resolving]
  - White blood cell count increased [Unknown]
